FAERS Safety Report 7787109-X (Version None)
Quarter: 2011Q3

REPORT INFORMATION
  Report Type: 
  Country: None (occurrence: None)
  Receive Date: 20110927
  Receipt Date: 20110913
  Transmission Date: 20111222
  Serious: Yes (Life-Threatening)
  Sender: FDA-Public Use
  Company Number: LTI2011A00117

PATIENT
  Age: 74 Year
  Sex: Male

DRUGS (9)
  1. ACTOS [Suspect]
     Indication: TYPE 2 DIABETES MELLITUS
     Dosage: 45 MG (45 MG, 1 IN 1 D)
     Route: 048
     Dates: start: 20050101, end: 20110501
  2. DIAMICRON (GLICLAZIDE) [Concomitant]
  3. JANUVIA [Concomitant]
  4. CRESTOR [Concomitant]
  5. XATRAL (ALFUZOSIN) [Concomitant]
  6. ALLOPURINOL [Concomitant]
  7. NSAID (ANTIINFLAMMATORY AGENTS, NON-STEROIDS) [Concomitant]
  8. RABEPRAZOLE SODIUM [Concomitant]
  9. AMLODIPINE BESYLATE [Concomitant]

REACTIONS (2)
  - BLADDER TRANSITIONAL CELL CARCINOMA STAGE III [None]
  - HAEMATURIA [None]
